FAERS Safety Report 10074012 (Version 2)
Quarter: 2014Q2

REPORT INFORMATION
  Report Type: Spontaneous
  Country: CL (occurrence: CL)
  Receive Date: 20140413
  Receipt Date: 20140425
  Transmission Date: 20141212
  Serious: Yes (Other)
  Sender: FDA-Public Use
  Company Number: CL-009507513-1404CHL006250

PATIENT
  Sex: Male

DRUGS (1)
  1. CIDOTEN [Suspect]
     Dosage: STRENGTH-0.5MG/ML.FREQUENCY,DAILYDOSAGE-UNK
     Route: 048

REACTIONS (1)
  - Anaphylactic shock [Unknown]
